FAERS Safety Report 7568859-7 (Version None)
Quarter: 2011Q2

REPORT INFORMATION
  Report Type: 
  Country: None (occurrence: None)
  Receive Date: 20110623
  Receipt Date: 20110613
  Transmission Date: 20111010
  Serious: Yes (Hospitalization, Other)
  Sender: FDA-Public Use
  Company Number: US-AMGEN-USASP2011030350

PATIENT
  Age: 28 Year
  Sex: Male

DRUGS (1)
  1. ENBREL [Suspect]
     Indication: PSORIATIC ARTHROPATHY
     Dosage: 50 MG, QWK
     Dates: start: 20031002

REACTIONS (7)
  - INJECTION SITE SWELLING [None]
  - RED BLOOD CELL SEDIMENTATION RATE INCREASED [None]
  - CONVULSION [None]
  - C-REACTIVE PROTEIN INCREASED [None]
  - INJECTION SITE INDURATION [None]
  - LATEX ALLERGY [None]
  - PSORIATIC ARTHROPATHY [None]
